FAERS Safety Report 6919705-3 (Version None)
Quarter: 2010Q3

REPORT INFORMATION
  Report Type: 
  Country: None (occurrence: None)
  Receive Date: 20100811
  Receipt Date: 20100513
  Transmission Date: 20110219
  Serious: Yes (Hospitalization)
  Sender: FDA-Public Use
  Company Number: US-BRISTOL-MYERS SQUIBB COMPANY-15101041

PATIENT
  Age: 55 Year
  Sex: Female

DRUGS (2)
  1. IXEMPRA KIT [Suspect]
     Indication: BREAST CANCER METASTATIC
     Dosage: CYCLE 1 (FROM 25-MAR-10):60 MG; ON 26APR2010 (CYCLE 2) DOSE REDUCED TO 45 MG (IV Q3 WEEKS)
     Route: 042
     Dates: start: 20100325
  2. XELODA [Suspect]
     Indication: BREAST CANCER METASTATIC
     Dosage: 14 OF 21 DAYS
     Route: 048

REACTIONS (7)
  - ANAEMIA [None]
  - BONE MARROW FAILURE [None]
  - DIARRHOEA [None]
  - DIZZINESS [None]
  - HYPOKALAEMIA [None]
  - HYPOTENSION [None]
  - PYREXIA [None]
